FAERS Safety Report 26011036 (Version 1)
Quarter: 2025Q4

REPORT INFORMATION
  Report Type: Spontaneous
  Country: US (occurrence: None)
  Receive Date: 20251107
  Receipt Date: 20251107
  Transmission Date: 20260117
  Serious: Yes (Hospitalization)
  Sender: FDA-CTU
  Company Number: None

PATIENT
  Age: 59 Year
  Sex: Female
  Weight: 58.6 kg

DRUGS (2)
  1. CYTARABINE [Suspect]
     Active Substance: CYTARABINE
     Dates: end: 20251002
  2. METHOTREXATE [Suspect]
     Active Substance: METHOTREXATE
     Dosage: OTHER FREQUENCY : 417.5MG IV ON 09/29 12.5MG IT ON 09/30;?
     Dates: start: 20250930

REACTIONS (3)
  - Pyrexia [None]
  - Trigger points [None]
  - Chest pain [None]

NARRATIVE: CASE EVENT DATE: 20251021
